FAERS Safety Report 17654246 (Version 1)
Quarter: 2020Q2

REPORT INFORMATION
  Report Type: Spontaneous
  Country: DE (occurrence: DE)
  Receive Date: 20200410
  Receipt Date: 20200410
  Transmission Date: 20200713
  Serious: Yes (Hospitalization)
  Sender: FDA-Public Use
  Company Number: DE-TEVA-2020-DE-1221726

PATIENT
  Age: 80 Year
  Sex: Female

DRUGS (12)
  1. CLONIDINE. [Suspect]
     Active Substance: CLONIDINE
     Dosage: 0.5-0-0-0
  2. BISOPROLOL [Suspect]
     Active Substance: BISOPROLOL
     Dosage: 10 MILLIGRAM DAILY;
  3. APIXABAN [Concomitant]
     Active Substance: APIXABAN
     Dosage: 5 MILLIGRAM DAILY;
  4. INSULIN GLARGIN [Suspect]
     Active Substance: INSULIN GLARGINE
     Dosage: 300 IE/ML, 16-0-0-0
     Route: 065
  5. VALSARTAN. [Suspect]
     Active Substance: VALSARTAN
     Dosage: 4 MILLIGRAM DAILY; 40 MG,
  6. TORASEMID [Suspect]
     Active Substance: TORSEMIDE
     Dosage: 50 MILLIGRAM DAILY;
  7. PREGABALIN. [Suspect]
     Active Substance: PREGABALIN
     Dosage: 100 MILLIGRAM DAILY;
  8. QUETIAPIN [Suspect]
     Active Substance: QUETIAPINE
     Dosage: 25 MILLIGRAM DAILY; 25 MG
  9. PANTOPRAZOL [Concomitant]
     Active Substance: PANTOPRAZOLE SODIUM
     Dosage: 40 MILLIGRAM DAILY;
  10. LEVOTHYROXIN-NATRIUM [Concomitant]
     Active Substance: LEVOTHYROXINE SODIUM
     Dosage: 50 MICROGRAM DAILY;
  11. ACTRAPID [Suspect]
     Active Substance: INSULIN HUMAN
     Dosage: 100 IE(ML, ?ACCORDING TO THE SCHEME
     Route: 065
  12. ALLOPURINOL. [Concomitant]
     Active Substance: ALLOPURINOL
     Dosage: 100 MILLIGRAM DAILY;

REACTIONS (5)
  - Sedation [Unknown]
  - Pyrexia [Unknown]
  - Dehydration [Unknown]
  - Hypoglycaemia [Unknown]
  - General physical health deterioration [Unknown]
